FAERS Safety Report 19490323 (Version 1)
Quarter: 2021Q3

REPORT INFORMATION
  Report Type: Spontaneous
  Country: FR (occurrence: FR)
  Receive Date: 20210705
  Receipt Date: 20210705
  Transmission Date: 20211014
  Serious: Yes (Life-Threatening, Hospitalization, Other)
  Sender: FDA-Public Use
  Company Number: FR-AUROBINDO-AUR-APL-2019-048555

PATIENT
  Age: 57 Year
  Sex: Female
  Weight: 63 kg

DRUGS (16)
  1. KYTRIL [Suspect]
     Active Substance: GRANISETRON HYDROCHLORIDE
     Indication: NON-HODGKIN^S LYMPHOMA
     Dosage: UNK, UNKNOWN
     Route: 065
     Dates: start: 20141204
  2. SOLU?MEDROL [Concomitant]
     Active Substance: METHYLPREDNISOLONE SODIUM SUCCINATE
     Indication: PROPHYLAXIS OF NAUSEA AND VOMITING
  3. ETOPOSIDE TEVA [Suspect]
     Active Substance: ETOPOSIDE
     Indication: NODAL MARGINAL ZONE B-CELL LYMPHOMA
  4. KYTRIL [Suspect]
     Active Substance: GRANISETRON HYDROCHLORIDE
     Indication: VOMITING
  5. EMEND [Concomitant]
     Active Substance: APREPITANT
     Indication: PROPHYLAXIS OF NAUSEA AND VOMITING
  6. ZEVALIN [Suspect]
     Active Substance: IBRITUMOMAB TIUXETAN
     Indication: NODAL MARGINAL ZONE B-CELL LYMPHOMA
     Dosage: UNK, SINGLE, DAY ?21
     Route: 042
     Dates: start: 20141113, end: 20141113
  7. ALKERAN [Suspect]
     Active Substance: MELPHALAN
     Indication: NON-HODGKIN^S LYMPHOMA
     Dosage: 140 MG/M2, SINGLE, DAY ?2
     Dates: start: 20141202, end: 20141202
  8. SOLU?MEDROL [Concomitant]
     Active Substance: METHYLPREDNISOLONE SODIUM SUCCINATE
     Indication: NON-HODGKIN^S LYMPHOMA
     Dosage: UNK, UNKNOWN
     Route: 065
  9. BICNU [Suspect]
     Active Substance: CARMUSTINE
     Indication: NODAL MARGINAL ZONE B-CELL LYMPHOMA
  10. EMEND [Concomitant]
     Active Substance: APREPITANT
     Indication: NON-HODGKIN^S LYMPHOMA
     Dosage: UNK, UNKNOWN
     Route: 065
  11. ZEVALIN [Suspect]
     Active Substance: IBRITUMOMAB TIUXETAN
     Indication: NON-HODGKIN^S LYMPHOMA
     Dosage: UNK, SINGLE, DAY ?14
     Route: 042
     Dates: start: 20141120, end: 20141120
  12. ALKERAN [Suspect]
     Active Substance: MELPHALAN
     Indication: NODAL MARGINAL ZONE B-CELL LYMPHOMA
  13. ZEVALIN [Suspect]
     Active Substance: IBRITUMOMAB TIUXETAN
     Dosage: UNK
     Route: 065
     Dates: start: 20141204
  14. BICNU [Suspect]
     Active Substance: CARMUSTINE
     Indication: NON-HODGKIN^S LYMPHOMA
     Dosage: 300 MG/M2, SINGLE, DAY ?6
     Route: 065
     Dates: start: 20141128, end: 20141128
  15. ETOPOSIDE TEVA [Suspect]
     Active Substance: ETOPOSIDE
     Indication: NON-HODGKIN^S LYMPHOMA
     Dosage: 100 MG/M2, BID, DAY ?6 TO DAY?3
     Route: 065
     Dates: start: 20141128, end: 20141201
  16. CYTARABINE. [Suspect]
     Active Substance: CYTARABINE
     Indication: NON-HODGKIN^S LYMPHOMA
     Dosage: 200 MG/M2, BID, DAY ?6 TO DAY ?3
     Route: 065
     Dates: start: 20141128, end: 20141201

REACTIONS (10)
  - Cholestasis [Recovering/Resolving]
  - Febrile bone marrow aplasia [Recovered/Resolved]
  - Generalised oedema [Recovered/Resolved]
  - Nausea [Recovered/Resolved]
  - Vomiting [Recovered/Resolved]
  - Venoocclusive disease [Unknown]
  - Diarrhoea [Recovered/Resolved]
  - Transaminases increased [Recovered/Resolved]
  - Fluid retention [Recovered/Resolved]
  - Stomatitis [Recovered/Resolved]

NARRATIVE: CASE EVENT DATE: 20141206
